FAERS Safety Report 19830361 (Version 1)
Quarter: 2021Q3

REPORT INFORMATION
  Report Type: Spontaneous
  Country: US (occurrence: US)
  Receive Date: 20210914
  Receipt Date: 20210914
  Transmission Date: 20211014
  Serious: Yes (Other)
  Sender: FDA-Public Use
  Company Number: US-AMGEN-USASP2021138899

PATIENT
  Age: 74 Year
  Sex: Male

DRUGS (4)
  1. ROMIPLOSTIM [Suspect]
     Active Substance: ROMIPLOSTIM
     Indication: OFF LABEL USE
  2. ROMIPLOSTIM [Suspect]
     Active Substance: ROMIPLOSTIM
     Indication: THROMBOCYTOPENIA
     Dosage: UNK
     Route: 065
  3. FILGRASTIM [Suspect]
     Active Substance: FILGRASTIM
     Indication: OFF LABEL USE
  4. FILGRASTIM [Suspect]
     Active Substance: FILGRASTIM
     Indication: GRANULOCYTOPENIA
     Dosage: UNK
     Route: 065

REACTIONS (4)
  - Graft versus host disease [Unknown]
  - Chronic allograft nephropathy [Unknown]
  - Nephrotic syndrome [Unknown]
  - Off label use [Unknown]
